FAERS Safety Report 25712748 (Version 1)
Quarter: 2025Q3

REPORT INFORMATION
  Report Type: Spontaneous
  Country: US (occurrence: US)
  Receive Date: 20250821
  Receipt Date: 20250821
  Transmission Date: 20251021
  Serious: No
  Sender: PURDUE
  Company Number: US-PURDUE-USA-2025-0319880

PATIENT
  Age: 75 Year
  Sex: Male

DRUGS (1)
  1. ACETAMINOPHEN\OXYCODONE HYDROCHLORIDE [Suspect]
     Active Substance: ACETAMINOPHEN\OXYCODONE HYDROCHLORIDE
     Indication: Procedural pain
     Route: 048
     Dates: start: 20250819

REACTIONS (4)
  - Micturition urgency [Unknown]
  - Dysuria [Unknown]
  - Wrong technique in product usage process [Unknown]
  - Inadequate analgesia [Unknown]

NARRATIVE: CASE EVENT DATE: 20250819
